FAERS Safety Report 7985457-1 (Version None)
Quarter: 2011Q4

REPORT INFORMATION
  Report Type: 
  Country: None (occurrence: None)
  Receive Date: 20111216
  Receipt Date: 20111212
  Transmission Date: 20120403
  Serious: Yes (Hospitalization)
  Sender: FDA-Public Use
  Company Number: US-ROCHE-1021841

PATIENT
  Sex: Female
  Weight: 135.9 kg

DRUGS (1)
  1. RANIBIZUMAB [Suspect]
     Indication: DIABETIC RETINAL OEDEMA
     Dosage: LAST DOSE PRIOR TO SAE: 19/OCT/2011
     Route: 050
     Dates: start: 20110420

REACTIONS (3)
  - BLOOD PRESSURE INCREASED [None]
  - CHEST PAIN [None]
  - BACK PAIN [None]
